FAERS Safety Report 16844504 (Version 1)
Quarter: 2019Q3

REPORT INFORMATION
  Report Type: Spontaneous
  Country: US (occurrence: US)
  Receive Date: 20190924
  Receipt Date: 20190924
  Transmission Date: 20191005
  Serious: Yes (Other)
  Sender: FDA-Public Use
  Company Number: US-TEVA-2019-US-1112090

PATIENT
  Age: 6 Decade
  Sex: Female

DRUGS (2)
  1. BENDAMUSTINE [Suspect]
     Active Substance: BENDAMUSTINE
     Indication: B-CELL LYMPHOMA
     Dosage: RECEIVED 6 CYCLES OF RITUXIMAB AND BENDAMUSTINE
     Route: 065
  2. RITUXIMAB. [Suspect]
     Active Substance: RITUXIMAB
     Indication: B-CELL LYMPHOMA
     Dosage: INITIALLY RECEIVED 6 CYCLES OF RITUXIMAB AND BENDAMUSTINE, AND THEN RECEIVED RITUXIMAB MAINTENANCE
     Route: 065

REACTIONS (4)
  - Conjunctivitis bacterial [Recovered/Resolved]
  - Pneumonia bacterial [Recovered/Resolved]
  - Hypogammaglobulinaemia [Recovered/Resolved]
  - Sinusitis bacterial [Recovered/Resolved]
